FAERS Safety Report 13814372 (Version 1)
Quarter: 2017Q3

REPORT INFORMATION
  Report Type: Spontaneous
  Country: US (occurrence: US)
  Receive Date: 20170728
  Receipt Date: 20170728
  Transmission Date: 20171127
  Serious: Yes (Other)
  Sender: FDA-Public Use
  Company Number: None

PATIENT
  Age: 8 Year
  Sex: Male
  Weight: 24.4 kg

DRUGS (2)
  1. BECLOMETHASONE MDI [Concomitant]
  2. KALYDECO [Suspect]
     Active Substance: IVACAFTOR
     Indication: CYSTIC FIBROSIS
     Route: 048
     Dates: start: 20160808, end: 20170728

REACTIONS (1)
  - Cataract [None]

NARRATIVE: CASE EVENT DATE: 20170727
